FAERS Safety Report 21094396 (Version 3)
Quarter: 2023Q4

REPORT INFORMATION
  Report Type: Spontaneous
  Country: US (occurrence: US)
  Receive Date: 20220718
  Receipt Date: 20231128
  Transmission Date: 20240110
  Serious: Yes (Death, Life-Threatening, Other)
  Sender: FDA-Public Use
  Company Number: US-PFIZER INC-PV202200023764

PATIENT
  Age: 75 Year
  Sex: Female

DRUGS (3)
  1. VECURONIUM BROMIDE [Suspect]
     Active Substance: VECURONIUM BROMIDE
     Indication: Anxiety
     Dosage: UNK
     Route: 042
     Dates: start: 20171226
  2. MIDAZOLAM [Suspect]
     Active Substance: MIDAZOLAM
     Indication: Anxiety
     Dosage: UNK
  3. VERSED [Suspect]
     Active Substance: MIDAZOLAM HYDROCHLORIDE
     Indication: Anxiety
     Dosage: UNK

REACTIONS (12)
  - Product dispensing error [Fatal]
  - Wrong product administered [Fatal]
  - Brain injury [Fatal]
  - Respiratory arrest [Unknown]
  - Unresponsive to stimuli [Unknown]
  - Brain oedema [Unknown]
  - Cardiac arrest [Unknown]
  - Pulse absent [Unknown]
  - Dyspnoea [Unknown]
  - Myoclonus [Unknown]
  - Neurological symptom [Unknown]
  - Condition aggravated [Unknown]

NARRATIVE: CASE EVENT DATE: 20171226
